FAERS Safety Report 5746001-2 (Version None)
Quarter: 2008Q2

REPORT INFORMATION
  Report Type: 
  Country: None (occurrence: None)
  Receive Date: 20080522
  Receipt Date: 20080513
  Transmission Date: 20081010
  Serious: Yes (Life-Threatening, Hospitalization)
  Sender: FDA-Public Use
  Company Number: GB-RANBAXY-2008RR-15220

PATIENT

DRUGS (5)
  1. CLARITHROMYCIN [Suspect]
     Indication: SKIN INFECTION
     Dosage: 500 MG, UNK
     Route: 048
     Dates: start: 20080410, end: 20080421
  2. BENDROFLUAZIDE [Concomitant]
     Indication: HYPERTENSION
     Dosage: 2.5 MG, UNK
     Route: 048
  3. ERYTHROMYCIN [Concomitant]
     Indication: SKIN INFECTION
     Dosage: 250 MG, UNK
     Route: 048
     Dates: start: 20080404, end: 20080410
  4. RAMIPRIL [Concomitant]
     Indication: HYPERTENSION
     Dosage: 5 MG, UNK
     Route: 048
  5. WARFARIN SODIUM [Concomitant]
     Indication: ATRIAL FIBRILLATION
     Route: 048

REACTIONS (5)
  - COAGULOPATHY [None]
  - HYPERBILIRUBINAEMIA [None]
  - HYPOTENSION [None]
  - JAUNDICE [None]
  - RENAL FAILURE ACUTE [None]
